FAERS Safety Report 8450306-4 (Version None)
Quarter: 2012Q2

REPORT INFORMATION
  Report Type: 
  Country: None (occurrence: None)
  Receive Date: 20120620
  Receipt Date: 20120608
  Transmission Date: 20120825
  Serious: Yes (Hospitalization)
  Sender: FDA-Public Use
  Company Number: FR-MPIJNJ-2012-04135

PATIENT

DRUGS (1)
  1. VELCADE [Suspect]
     Indication: MULTIPLE MYELOMA
     Dosage: 3.5 MG, UNK
     Route: 058
     Dates: start: 20090901, end: 20100101

REACTIONS (1)
  - TONGUE NEOPLASM MALIGNANT STAGE UNSPECIFIED [None]
